FAERS Safety Report 6103992-8 (Version None)
Quarter: 2009Q1

REPORT INFORMATION
  Report Type: 
  Country: None (occurrence: None)
  Receive Date: 20090305
  Receipt Date: 20090212
  Transmission Date: 20090719
  Serious: Yes (Hospitalization, Other)
  Sender: FDA-Public Use
  Company Number: FR-MERCK-0902FRA00037

PATIENT
  Age: 38 Year
  Sex: Male

DRUGS (11)
  1. FOSAMAX [Suspect]
     Indication: OSTEOPOROSIS
     Route: 048
     Dates: start: 20050101, end: 20080601
  2. FOSAMAX [Suspect]
     Route: 048
     Dates: start: 20081201
  3. AMOXICILLIN [Concomitant]
     Indication: PROPHYLAXIS
     Route: 048
  4. SULFAMETHOXAZOLE AND TRIMETHOPRIM [Concomitant]
     Indication: PROPHYLAXIS
     Route: 048
  5. RAMIPRIL [Concomitant]
     Indication: HYPERTENSION
     Route: 048
  6. ACETAMINOPHEN AND PROPOXYPHENE HYDROCHLORIDE [Concomitant]
     Route: 048
  7. CORTISONE ACETATE [Suspect]
     Indication: LEUKAEMIA
     Route: 048
  8. GLOBULIN, IMMUNE [Concomitant]
     Route: 065
  9. ZOLPIDEM TARTRATE [Concomitant]
     Route: 048
  10. BROMAZEPAM [Concomitant]
     Route: 048
  11. VENLAFAXINE HYDROCHLORIDE [Concomitant]
     Route: 048

REACTIONS (1)
  - OSTEONECROSIS [None]
